FAERS Safety Report 17473406 (Version 1)
Quarter: 2020Q1

REPORT INFORMATION
  Report Type: Spontaneous
  Country: US (occurrence: US)
  Receive Date: 20200228
  Receipt Date: 20200228
  Transmission Date: 20200409
  Serious: Yes (Hospitalization)
  Sender: FDA-Public Use
  Company Number: US-MYLANLABS-2020M1021117

PATIENT
  Age: 65 Year
  Sex: Male

DRUGS (8)
  1. DIGOXIN. [Suspect]
     Active Substance: DIGOXIN
     Indication: SUPRAVENTRICULAR TACHYCARDIA
     Dosage: UNK
     Route: 065
  2. CEFTRIAXONE. [Concomitant]
     Active Substance: CEFTRIAXONE
     Indication: SEPTIC SHOCK
     Route: 042
  3. CEFTRIAXONE. [Concomitant]
     Active Substance: CEFTRIAXONE
     Indication: DIVERTICULITIS
  4. AMIKACIN. [Concomitant]
     Active Substance: AMIKACIN
     Indication: DIVERTICULITIS
  5. METRONIDAZOLE. [Concomitant]
     Active Substance: METRONIDAZOLE
     Indication: DIVERTICULITIS
  6. AMIKACIN. [Concomitant]
     Active Substance: AMIKACIN
     Indication: SEPTIC SHOCK
     Route: 042
  7. METRONIDAZOLE. [Concomitant]
     Active Substance: METRONIDAZOLE
     Indication: SEPTIC SHOCK
     Dosage: UNK
     Route: 042
  8. MIDODRINE [Interacting]
     Active Substance: MIDODRINE
     Indication: HAEMODYNAMIC INSTABILITY
     Dosage: 5 MILLIGRAM
     Route: 048

REACTIONS (2)
  - Bradycardia [Recovered/Resolved]
  - Drug interaction [Recovered/Resolved]
